FAERS Safety Report 10902806 (Version 1)
Quarter: 2015Q1

REPORT INFORMATION
  Report Type: Spontaneous
  Country: US (occurrence: US)
  Receive Date: 20150310
  Receipt Date: 20150310
  Transmission Date: 20150721
  Serious: Yes (Death, Other)
  Sender: FDA-Public Use
  Company Number: US-GLAXOSMITHKLINE-US2015031199

PATIENT
  Age: 58 Year
  Sex: Male

DRUGS (4)
  1. TAFINLAR [Suspect]
     Active Substance: DABRAFENIB MESYLATE
     Indication: MALIGNANT MELANOMA
     Dosage: UNK
     Dates: start: 201405
  2. DECADRON [Suspect]
     Active Substance: DEXAMETHASONE
     Indication: CENTRAL NERVOUS SYSTEM LESION
     Dosage: UNK
     Dates: start: 201405
  3. MEKINIST [Suspect]
     Active Substance: TRAMETINIB DIMETHYL SULFOXIDE
     Indication: MALIGNANT MELANOMA
     Dosage: UNK
     Dates: start: 201405
  4. DECADRON [Suspect]
     Active Substance: DEXAMETHASONE
     Indication: LUNG DISORDER

REACTIONS (5)
  - Pyrexia [Unknown]
  - Lung disorder [Recovered/Resolved]
  - Myocardial infarction [Fatal]
  - Brain neoplasm malignant [Fatal]
  - Respiratory arrest [Fatal]

NARRATIVE: CASE EVENT DATE: 20141221
